FAERS Safety Report 4636426-0 (Version None)
Quarter: 2005Q2

REPORT INFORMATION
  Report Type: 
  Country: None (occurrence: None)
  Receive Date: 20050415
  Receipt Date: 20050331
  Transmission Date: 20051028
  Serious: Yes (Death)
  Sender: FDA-Public Use
  Company Number: JP-JNJFOC-20050401345

PATIENT
  Sex: Female

DRUGS (3)
  1. DUROTEP [Suspect]
     Indication: CANCER PAIN
     Route: 062
     Dates: start: 20050216, end: 20050228
  2. METOCLOPRAMIDE [Concomitant]
     Indication: VOMITING
     Route: 042
  3. METOCLOPRAMIDE [Concomitant]
     Indication: NAUSEA
     Route: 042

REACTIONS (2)
  - COLON CANCER [None]
  - MALIGNANT NEOPLASM PROGRESSION [None]
